FAERS Safety Report 8913916 (Version 3)
Quarter: 2013Q4

REPORT INFORMATION
  Report Type: Report from Study
  Country: US (occurrence: US)
  Receive Date: 20121119
  Receipt Date: 20131217
  Transmission Date: 20140711
  Serious: Yes (Hospitalization, Other)
  Sender: FDA-Public Use
  Company Number: US-ACTELION-A-US2012-69920

PATIENT
  Age: 65 Year
  Sex: Female

DRUGS (1)
  1. TRACLEER [Suspect]
     Indication: PULMONARY ARTERIAL HYPERTENSION
     Dosage: UNK
     Route: 048

REACTIONS (11)
  - Pneumonia fungal [Unknown]
  - Pneumonia [Not Recovered/Not Resolved]
  - Gastric disorder [Unknown]
  - Fall [Unknown]
  - Contusion [Unknown]
  - Respiratory tract infection [Unknown]
  - Exercise tolerance decreased [Unknown]
  - Chest pain [Unknown]
  - Dizziness [Unknown]
  - Decreased appetite [Unknown]
  - Cough [Unknown]
